FAERS Safety Report 8512170-4 (Version None)
Quarter: 2012Q3

REPORT INFORMATION
  Report Type: 
  Country: None (occurrence: None)
  Receive Date: 20120716
  Receipt Date: 20120701
  Transmission Date: 20120928
  Serious: Yes (Other)
  Sender: FDA-Public Use
  Company Number: CH-ROCHE-1083587

PATIENT

DRUGS (2)
  1. XELODA [Suspect]
     Indication: RECTAL CANCER
  2. OXALIPLATIN [Suspect]
     Indication: RECTAL CANCER

REACTIONS (8)
  - THROMBOCYTOPENIA [None]
  - DEEP VEIN THROMBOSIS [None]
  - INFECTION [None]
  - DIARRHOEA [None]
  - SYNCOPE [None]
  - NEUROTOXICITY [None]
  - PAIN [None]
  - FATIGUE [None]
